FAERS Safety Report 6003253-1 (Version None)
Quarter: 2008Q4

REPORT INFORMATION
  Report Type: 
  Country: None (occurrence: None)
  Receive Date: 20081212
  Receipt Date: 20081204
  Transmission Date: 20090506
  Serious: Yes (Disabling)
  Sender: FDA-Public Use
  Company Number: 2008-187617-NL

PATIENT
  Age: 24 Year
  Sex: Female

DRUGS (4)
  1. ETONORGESTREL [Suspect]
     Indication: CONTRACEPTION
     Dosage: DF; SUBCUTANEOUS
     Route: 058
     Dates: start: 20020101, end: 20081009
  2. ETONORGESTREL [Suspect]
     Indication: ENDOMETRIOSIS
     Dosage: DF; SUBCUTANEOUS
     Route: 058
     Dates: start: 20020101, end: 20081009
  3. ETONORGESTREL [Suspect]
     Indication: CONTRACEPTION
     Dosage: DF; SUBCUTANEOUS
     Route: 058
     Dates: start: 20081009, end: 20081120
  4. ETONORGESTREL [Suspect]
     Indication: ENDOMETRIOSIS
     Dosage: DF; SUBCUTANEOUS
     Route: 058
     Dates: start: 20081009, end: 20081120

REACTIONS (3)
  - DIZZINESS [None]
  - HYPERSENSITIVITY [None]
  - URTICARIA [None]
